FAERS Safety Report 10413229 (Version 1)
Quarter: 2014Q2

REPORT INFORMATION
  Report Type: Spontaneous
  Country: US (occurrence: None)
  Receive Date: 20140530
  Receipt Date: 20140530
  Transmission Date: 20141212
  Serious: No
  Sender: FDA-Public Use
  Company Number: 226323

PATIENT
  Age: 67 Year
  Sex: Male

DRUGS (1)
  1. PICATO [Suspect]
     Indication: PRODUCT USED FOR UNKNOWN INDICATION
     Dates: start: 20140209, end: 20140211

REACTIONS (3)
  - Drug ineffective [None]
  - Application site reaction [None]
  - Inappropriate schedule of drug administration [None]
